FAERS Safety Report 15888649 (Version 1)
Quarter: 2019Q1

REPORT INFORMATION
  Report Type: Report from Study
  Country: CO (occurrence: CO)
  Receive Date: 20190130
  Receipt Date: 20190130
  Transmission Date: 20190417
  Serious: Yes (Hospitalization)
  Sender: FDA-Public Use
  Company Number: PHHY2015CO027189

PATIENT
  Age: 61 Year
  Sex: Female
  Weight: 70 kg

DRUGS (12)
  1. SANDOSTATIN LAR DEPOT [Suspect]
     Active Substance: OCTREOTIDE ACETATE
     Dosage: 2 DF OF 20 MG QMO
     Route: 030
     Dates: start: 201601, end: 201607
  2. LOSARTAN. [Suspect]
     Active Substance: LOSARTAN
     Indication: HYPERTENSION
     Dosage: 50 MG, Q12H
     Route: 048
  3. LEVOMEPROMAZINE [Suspect]
     Active Substance: LEVOMEPROMAZINE
     Indication: PRODUCT USED FOR UNKNOWN INDICATION
     Route: 065
  4. SANDOSTATIN LAR DEPOT [Suspect]
     Active Substance: OCTREOTIDE ACETATE
     Indication: ACROMEGALY
     Dosage: 2 DF OF 20 MG QMO
     Route: 030
     Dates: start: 20140101, end: 2015
  5. METFORMIN [Suspect]
     Active Substance: METFORMIN HYDROCHLORIDE
     Indication: BLOOD GLUCOSE INCREASED
     Dosage: 1 DF, QD
     Route: 065
  6. SANDOSTATIN LAR DEPOT [Suspect]
     Active Substance: OCTREOTIDE ACETATE
     Dosage: 40 MG, QMO
     Route: 030
     Dates: end: 201804
  7. CABERGOLINE. [Concomitant]
     Active Substance: CABERGOLINE
     Indication: PRODUCT USED FOR UNKNOWN INDICATION
     Dosage: 0.5 MG, EVERY 8 DAYS
     Route: 048
  8. VITAMIN E [Concomitant]
     Active Substance: .ALPHA.-TOCOPHEROL
     Indication: PRODUCT USED FOR UNKNOWN INDICATION
     Dosage: 400 MG, QD
     Route: 048
  9. GLUCOSAMINE [Concomitant]
     Active Substance: GLUCOSAMINE
     Indication: PRODUCT USED FOR UNKNOWN INDICATION
     Route: 065
  10. ATORVASTATIN [Suspect]
     Active Substance: ATORVASTATIN
     Dosage: 40 MG, QD
     Route: 048
  11. ATORVASTATIN [Suspect]
     Active Substance: ATORVASTATIN
     Indication: HYPERCHOLESTEROLAEMIA
     Dosage: 50 MG, QD AT NIGHT
     Route: 048
  12. SANDOSTATIN LAR DEPOT [Suspect]
     Active Substance: OCTREOTIDE ACETATE
     Dosage: 40 MG, QMO
     Route: 030
     Dates: start: 20150301

REACTIONS (17)
  - Neoplasm progression [Unknown]
  - Asthenia [Unknown]
  - Headache [Unknown]
  - Feeling of despair [Unknown]
  - Head discomfort [Unknown]
  - Feeling abnormal [Unknown]
  - Psychiatric symptom [Unknown]
  - Tachycardia [Unknown]
  - Chest pain [Unknown]
  - Crying [Unknown]
  - Blood glucose increased [Unknown]
  - Dizziness [Unknown]
  - General physical health deterioration [Not Recovered/Not Resolved]
  - Brain neoplasm [Unknown]
  - Memory impairment [Unknown]
  - Malaise [Unknown]
  - Pain [Unknown]

NARRATIVE: CASE EVENT DATE: 20160713
